FAERS Safety Report 5082081-8 (Version None)
Quarter: 2006Q3

REPORT INFORMATION
  Report Type: 
  Country: None (occurrence: None)
  Receive Date: 20060815
  Receipt Date: 20060815
  Transmission Date: 20061208
  Serious: Yes (Other)
  Sender: FDA-Public Use
  Company Number: None

PATIENT
  Age: 77 Year
  Sex: Female

DRUGS (6)
  1. FLECAINIDE ACETATE [Suspect]
     Indication: ARRHYTHMIA
     Dosage: 1/2 TO 1 TABLET TWICE DAILY
     Dates: start: 20060616, end: 20060619
  2. SPIRONOLACTONE [Concomitant]
  3. AVAPRO [Concomitant]
  4. COREG [Concomitant]
  5. OMEPRAZOLE [Concomitant]
  6. SINGULAIR [Concomitant]

REACTIONS (3)
  - ARRHYTHMIA [None]
  - SELF INJURIOUS BEHAVIOUR [None]
  - THERAPEUTIC RESPONSE UNEXPECTED WITH DRUG SUBSTITUTION [None]
